FAERS Safety Report 13304285 (Version 2)
Quarter: 2017Q2

REPORT INFORMATION
  Report Type: Report from Study
  Country: US (occurrence: US)
  Receive Date: 20170308
  Receipt Date: 20170426
  Transmission Date: 20170830
  Serious: No
  Sender: FDA-Public Use
  Company Number: US-009507513-1703USA001191

PATIENT
  Sex: Female

DRUGS (1)
  1. NEXPLANON [Suspect]
     Active Substance: ETONOGESTREL
     Dosage: UNK
     Route: 059

REACTIONS (12)
  - Weight decreased [Unknown]
  - Vaginal haemorrhage [Unknown]
  - Adverse event [Unknown]
  - Depressed mood [Unknown]
  - Confusional state [Unknown]
  - Implant site pain [Unknown]
  - Migraine [Unknown]
  - Decreased appetite [Unknown]
  - Weight increased [Unknown]
  - Flatulence [Unknown]
  - Headache [Unknown]
  - Breast tenderness [Unknown]
